FAERS Safety Report 4693805-3 (Version None)
Quarter: 2005Q2

REPORT INFORMATION
  Report Type: 
  Country: None (occurrence: None)
  Receive Date: 20050616
  Receipt Date: 20050607
  Transmission Date: 20051028
  Serious: Yes (Other)
  Sender: FDA-Public Use
  Company Number: 2005-06-0518

PATIENT
  Age: 55 Year
  Sex: Male

DRUGS (1)
  1. INTRON A [Suspect]
     Indication: CHRONIC MYELOID LEUKAEMIA
     Dosage: 8 MU QD
     Route: 042

REACTIONS (3)
  - PULMONARY HYPERTENSION [None]
  - SKIN ULCER [None]
  - TOE AMPUTATION [None]
